FAERS Safety Report 5754735-9 (Version None)
Quarter: 2008Q2

REPORT INFORMATION
  Report Type: 
  Country: None (occurrence: None)
  Receive Date: 20080530
  Receipt Date: 20080522
  Transmission Date: 20081010
  Serious: Yes (Other)
  Sender: FDA-Public Use
  Company Number: US-PFIZER INC-2008044544

PATIENT
  Sex: Male

DRUGS (1)
  1. REVATIO [Suspect]
     Indication: HYPERTENSION
     Route: 048

REACTIONS (2)
  - HYPERTENSIVE CRISIS [None]
  - LOSS OF CONSCIOUSNESS [None]
